FAERS Safety Report 19628375 (Version 1)
Quarter: 2021Q3

REPORT INFORMATION
  Report Type: Spontaneous
  Country: US (occurrence: US)
  Receive Date: 20210729
  Receipt Date: 20210729
  Transmission Date: 20211014
  Serious: Yes (Other)
  Sender: FDA-Public Use
  Company Number: US-LUPIN PHARMACEUTICALS INC.-2021-13172

PATIENT
  Age: 45 Year
  Sex: Male

DRUGS (8)
  1. PREDNISOLONE. [Suspect]
     Active Substance: PREDNISOLONE
     Indication: INFLAMMATION
     Dosage: UNK
     Route: 061
  2. SECUKINUMAB. [Suspect]
     Active Substance: SECUKINUMAB
     Indication: ANKYLOSING SPONDYLITIS
     Dosage: UNK
     Route: 065
  3. MOXIFLOXACIN. [Concomitant]
     Active Substance: MOXIFLOXACIN
     Dosage: UNK
     Route: 048
  4. PREDNISONE. [Suspect]
     Active Substance: PREDNISONE
     Dosage: UNK, DOSE REDUCED
     Route: 048
  5. MOXIFLOXACIN. [Concomitant]
     Active Substance: MOXIFLOXACIN
     Indication: ANTIBIOTIC THERAPY
     Dosage: UNK
     Route: 061
  6. TRIAMCINOLONE ACETONIDE. [Suspect]
     Active Substance: TRIAMCINOLONE ACETONIDE
     Indication: INFLAMMATION
     Dosage: UNK
  7. PREDNISONE. [Suspect]
     Active Substance: PREDNISONE
     Dosage: 50 MILLIGRAM
     Route: 048
  8. PREDNISONE. [Suspect]
     Active Substance: PREDNISONE
     Indication: INFLAMMATION
     Dosage: UNK
     Route: 048

REACTIONS (3)
  - Necrotising scleritis [Recovered/Resolved]
  - Eye infection fungal [Recovered/Resolved]
  - Histoplasmosis [Recovered/Resolved]
